FAERS Safety Report 6962417-0 (Version None)
Quarter: 2010Q3

REPORT INFORMATION
  Report Type: 
  Country: None (occurrence: None)
  Receive Date: 20100823
  Receipt Date: 20100714
  Transmission Date: 20110219
  Serious: No
  Sender: FDA-Public Use
  Company Number: 015751

PATIENT
  Age: 22 Year
  Sex: Female

DRUGS (1)
  1. CIMZIA [Suspect]
     Dosage: 400 MG 1X/2 WEEKS SUBCUTANEOUS
     Route: 058
     Dates: start: 20100601

REACTIONS (4)
  - ARTHRALGIA [None]
  - DYSPNOEA [None]
  - INJECTION SITE REACTION [None]
  - INJECTION SITE SWELLING [None]
